FAERS Safety Report 17983786 (Version 1)
Quarter: 2020Q3

REPORT INFORMATION
  Report Type: Spontaneous
  Country: CA (occurrence: CA)
  Receive Date: 20200706
  Receipt Date: 20200706
  Transmission Date: 20201103
  Serious: Yes (Hospitalization)
  Sender: FDA-Public Use
  Company Number: CA-TEVA-2020-CA-1796682

PATIENT
  Age: 37 Year
  Sex: Female

DRUGS (8)
  1. DOXORUBICIN INJECTION [Suspect]
     Active Substance: DOXORUBICIN
     Indication: TRIPLE NEGATIVE BREAST CANCER
     Route: 041
  2. METOCLOPRAMIDE. [Concomitant]
     Active Substance: METOCLOPRAMIDE
  3. VITAMIN B12 [Concomitant]
     Active Substance: CYANOCOBALAMIN
  4. DOCETAXEL INJECTION 20MG/2ML; 80MG/8ML;160MG/16ML VIALS [Suspect]
     Active Substance: DOCETAXEL
     Indication: TRIPLE NEGATIVE BREAST CANCER
     Route: 041
  5. PROCYTOX [Suspect]
     Active Substance: CYCLOPHOSPHAMIDE
     Indication: TRIPLE NEGATIVE BREAST CANCER
     Route: 041
  6. GRASTOFIL SINGLE USE PRE?FILLED SYRINGE [Concomitant]
     Active Substance: FILGRASTIM
  7. CODEINE [Concomitant]
     Active Substance: CODEINE
  8. STELARA [Concomitant]
     Active Substance: USTEKINUMAB

REACTIONS (1)
  - Febrile neutropenia [Recovered/Resolved]
